FAERS Safety Report 19029445 (Version 1)
Quarter: 2021Q1

REPORT INFORMATION
  Report Type: Spontaneous
  Country: GB (occurrence: GB)
  Receive Date: 20210318
  Receipt Date: 20210318
  Transmission Date: 20210420
  Serious: Yes (Disabling, Other)
  Sender: FDA-Public Use
  Company Number: GB-TAKEDA-2021TJP009615

PATIENT
  Age: 40 Year
  Sex: Female
  Weight: 51.71 kg

DRUGS (3)
  1. OMEPRAZOLE. [Suspect]
     Active Substance: OMEPRAZOLE
     Dosage: UNK
     Route: 048
  2. LANSOPRAZOLE. [Suspect]
     Active Substance: LANSOPRAZOLE
     Indication: ILL-DEFINED DISORDER
     Dosage: 30 MILLIGRAM
     Route: 048
     Dates: start: 20200907, end: 20201003
  3. OMEPRAZOLE. [Suspect]
     Active Substance: OMEPRAZOLE
     Indication: ILL-DEFINED DISORDER
     Dosage: UNK
     Route: 048
     Dates: start: 20201004, end: 20201025

REACTIONS (10)
  - Feeling abnormal [Unknown]
  - Iron deficiency [Unknown]
  - Paraesthesia [Unknown]
  - Pharyngeal inflammation [Unknown]
  - Pain [Unknown]
  - Oropharyngeal pain [Unknown]
  - Skin disorder [Unknown]
  - Neuralgia [Unknown]
  - Sensation of foreign body [Unknown]
  - Anxiety [Unknown]
